FAERS Safety Report 20586996 (Version 1)
Quarter: 2022Q1

REPORT INFORMATION
  Report Type: Spontaneous
  Country: JP (occurrence: JP)
  Receive Date: 20220314
  Receipt Date: 20220314
  Transmission Date: 20220423
  Serious: Yes (Hospitalization)
  Sender: FDA-Public Use
  Company Number: JP-ABBVIE-20K-087-3305026-00

PATIENT
  Age: 61 Year
  Sex: Female

DRUGS (3)
  1. CARBIDOPA\LEVODOPA [Suspect]
     Active Substance: CARBIDOPA\LEVODOPA
     Indication: Parkinson^s disease
     Dosage: MD: 15 ML?CD: 4.6 ML/HR X 16 HRS?ED: 1.7 ML/UNIT X 3
     Route: 050
     Dates: start: 20170622
  2. CARBIDOPA\LEVODOPA [Suspect]
     Active Substance: CARBIDOPA\LEVODOPA
     Dosage: MD: 20 ML?CD: 4.5 ML/HR X 16 HRS?ED: 1.7 ML/UNIT X 3
     Route: 050
  3. SINEMET [Concomitant]
     Active Substance: CARBIDOPA\LEVODOPA
     Indication: Parkinson^s disease
     Route: 048

REACTIONS (10)
  - Altered state of consciousness [Unknown]
  - Back pain [Unknown]
  - Overdose [Unknown]
  - Hypokinesia [Unknown]
  - Tremor [Not Recovered/Not Resolved]
  - Muscle rigidity [Unknown]
  - Malaise [Unknown]
  - Dizziness [Unknown]
  - Abdominal pain [Not Recovered/Not Resolved]
  - On and off phenomenon [Unknown]

NARRATIVE: CASE EVENT DATE: 20170601
